FAERS Safety Report 7012834 (Version 2)
Quarter: 2014Q3

REPORT INFORMATION
  Report Type: Spontaneous
  Country: US (occurrence: None)
  Receive Date: 20090526
  Receipt Date: 20140912
  Transmission Date: 20150326
  Serious: Yes (Hospitalization, Other)
  Sender: FDA-Public Use
  Company Number: 2009S1004107

PATIENT
  Age: 65 Year
  Sex: Female
  Weight: 72 kg

DRUGS (10)
  1. NAPROXEN. [Concomitant]
     Active Substance: NAPROXEN
  2. CAPTOPRIL. [Concomitant]
     Active Substance: CAPTOPRIL
  3. HYDROCHLOROTHIAZIDE. [Concomitant]
     Active Substance: HYDROCHLOROTHIAZIDE
  4. FISH OIL [Concomitant]
     Active Substance: FISH OIL
  5. VITAMIN C [Concomitant]
     Active Substance: ASCORBIC ACID
  6. VITAMIN D (ERGOCALCIFEROL) [Concomitant]
     Active Substance: ERGOCALCIFEROL
  7. EZ PREP (EZ PREP) (75 MILLILITRE (S), ORAL SOLUTION) [Suspect]
     Active Substance: SODIUM PHOSPHATE, MONOBASIC, MONOHYDRATE
     Indication: COLONOSCOPY
     Dosage: PO
     Route: 048
     Dates: start: 200706, end: 200706
  8. AVAPRO [Concomitant]
     Active Substance: IRBESARTAN
  9. LOVASTATIN. [Concomitant]
     Active Substance: LOVASTATIN
  10. TYLENOL [Concomitant]
     Active Substance: ACETAMINOPHEN

REACTIONS (6)
  - Headache [None]
  - Blood potassium decreased [None]
  - Dehydration [None]
  - Overweight [None]
  - Renal failure chronic [None]
  - Nausea [None]

NARRATIVE: CASE EVENT DATE: 20070612
